FAERS Safety Report 20625765 (Version 1)
Quarter: 2022Q1

REPORT INFORMATION
  Report Type: Spontaneous
  Country: US (occurrence: None)
  Receive Date: 20220323
  Receipt Date: 20220323
  Transmission Date: 20220423
  Serious: No
  Sender: FDA-Public Use
  Company Number: US-ROCHE-2893437

PATIENT
  Sex: Female
  Weight: 95.340 kg

DRUGS (3)
  1. ERIVEDGE [Suspect]
     Active Substance: VISMODEGIB
     Indication: Basal cell carcinoma
     Dosage: YES
     Route: 048
     Dates: start: 2020
  2. ESTRIOL [Concomitant]
     Active Substance: ESTRIOL
     Indication: Hormone replacement therapy
     Route: 062
  3. DILTIAZEM [Concomitant]
     Active Substance: DILTIAZEM
     Indication: Hypertension
     Route: 048

REACTIONS (1)
  - Diarrhoea [Not Recovered/Not Resolved]
